FAERS Safety Report 5130787-4 (Version None)
Quarter: 2006Q4

REPORT INFORMATION
  Report Type: 
  Country: None (occurrence: None)
  Receive Date: 20061019
  Receipt Date: 20060630
  Transmission Date: 20070319
  Serious: Yes (Life-Threatening)
  Sender: FDA-Public Use
  Company Number: JP-BRISTOL-MYERS SQUIBB COMPANY-13429568

PATIENT
  Age: 80 Year
  Sex: Female

DRUGS (6)
  1. PARAPLATIN [Suspect]
     Indication: OVARIAN CANCER
     Route: 042
     Dates: end: 20060517
  2. TAXOL [Concomitant]
     Route: 042
     Dates: end: 20060517
  3. FAMOTIDINE [Concomitant]
     Route: 042
     Dates: end: 20060517
  4. DEXAMETHASONE SODIUM PHOSPHATE [Concomitant]
     Route: 042
     Dates: end: 20060517
  5. GRANISETRON  HCL [Concomitant]
     Route: 042
     Dates: end: 20060517
  6. DIPHENHYDRAMINE HCL [Concomitant]
     Route: 048
     Dates: end: 20060517

REACTIONS (5)
  - ASTHMA [None]
  - DYSPNOEA [None]
  - FLUSHING [None]
  - PALPITATIONS [None]
  - WHEEZING [None]
